FAERS Safety Report 5505826-9 (Version None)
Quarter: 2007Q4

REPORT INFORMATION
  Report Type: 
  Country: None (occurrence: None)
  Receive Date: 20071102
  Receipt Date: 20071022
  Transmission Date: 20080405
  Serious: Yes (Death)
  Sender: FDA-Public Use
  Company Number: LB-SANOFI-SYNTHELABO-A01200711458

PATIENT
  Age: 77 Year
  Sex: Male
  Weight: 60 kg

DRUGS (4)
  1. ACETYLSALICYLIC ACID SRT [Concomitant]
     Indication: ACUTE CORONARY SYNDROME
     Route: 048
  2. LOVENOX [Concomitant]
     Indication: ACUTE CORONARY SYNDROME
     Route: 058
  3. LASIX [Concomitant]
     Indication: HYPERTENSION
     Route: 048
  4. PLAVIX [Suspect]
     Indication: ACUTE CORONARY SYNDROME
     Route: 048

REACTIONS (2)
  - INTESTINAL OBSTRUCTION [None]
  - SEPSIS [None]
